FAERS Safety Report 9118677 (Version 1)
Quarter: 2013Q1

REPORT INFORMATION
  Report Type: Spontaneous
  Country: US (occurrence: None)
  Receive Date: 20130221
  Receipt Date: 20130221
  Transmission Date: 20140127
  Serious: Yes (Other)
  Sender: FDA-Public Use
  Company Number: None

PATIENT
  Age: 55 Year
  Sex: Female

DRUGS (1)
  1. NITROFURANTOIN 100 MG [Suspect]
     Indication: URINARY TRACT INFECTION
     Dosage: 1 PER DAY PO
     Route: 048
     Dates: start: 20130214, end: 20130220

REACTIONS (5)
  - Headache [None]
  - Back pain [None]
  - Chills [None]
  - Fatigue [None]
  - Arthralgia [None]
